FAERS Safety Report 4704841-2 (Version None)
Quarter: 2005Q2

REPORT INFORMATION
  Report Type: 
  Country: None (occurrence: None)
  Receive Date: 20050629
  Receipt Date: 20030120
  Transmission Date: 20051028
  Serious: Yes (Other)
  Sender: FDA-Public Use
  Company Number: 4800

PATIENT
  Age: 62 Year
  Sex: Female

DRUGS (5)
  1. MITOMYCIN [Suspect]
     Indication: METASTASES TO LUNG
  2. MITOMYCIN [Suspect]
     Indication: UTERINE LEIOMYOSARCOMA
  3. DOXORUBICIN HCL [Suspect]
     Indication: UTERINE LEIOMYOSARCOMA
  4. CISPLATIN [Suspect]
     Indication: UTERINE LEIOMYOSARCOMA
  5. LISINOPRIL [Concomitant]

REACTIONS (3)
  - HAEMOLYTIC URAEMIC SYNDROME [None]
  - HYPERSENSITIVITY [None]
  - PROCEDURAL COMPLICATION [None]
